FAERS Safety Report 10891681 (Version 1)
Quarter: 2015Q1

REPORT INFORMATION
  Report Type: Spontaneous
  Country: BR (occurrence: BR)
  Receive Date: 20150306
  Receipt Date: 20150306
  Transmission Date: 20150721
  Serious: Yes (Hospitalization, Other)
  Sender: FDA-Public Use
  Company Number: BR-ASTRAZENECA-2015SE20141

PATIENT
  Age: 525 Month
  Sex: Female
  Weight: 77 kg

DRUGS (7)
  1. UNSPECIFIED CORTICOSTEROID [Suspect]
     Active Substance: UNSPECIFIED INGREDIENT
     Indication: ASTHMATIC CRISIS
     Dosage: AS REQUIRED
     Route: 042
     Dates: start: 201412
  2. PREDNISONE. [Concomitant]
     Active Substance: PREDNISONE
     Indication: ASTHMATIC CRISIS
     Dosage: AS REQUIRED
     Route: 048
     Dates: start: 201412
  3. SYMBICORT [Suspect]
     Active Substance: BUDESONIDE\FORMOTEROL FUMARATE DIHYDRATE
     Indication: ASTHMA
     Dosage: 320/9 MCG, BID
     Route: 055
     Dates: start: 201502
  4. SYMBICORT [Suspect]
     Active Substance: BUDESONIDE\FORMOTEROL FUMARATE DIHYDRATE
     Indication: ASTHMA
     Dosage: 320/9 MCG, BID
     Route: 055
     Dates: start: 201412, end: 201501
  5. SYMBICORT [Suspect]
     Active Substance: BUDESONIDE\FORMOTEROL FUMARATE DIHYDRATE
     Indication: ASTHMA
     Dosage: ALENIA, 12/400 MCG
     Route: 055
     Dates: end: 201412
  6. LORATADINE. [Concomitant]
     Active Substance: LORATADINE
     Indication: ASTHMATIC CRISIS
     Dosage: AS REQUIRED
     Dates: start: 201412
  7. SYMBICORT [Suspect]
     Active Substance: BUDESONIDE\FORMOTEROL FUMARATE DIHYDRATE
     Indication: ASTHMA
     Dosage: ALENIA, 12/400 MCG
     Route: 055
     Dates: start: 201501, end: 201502

REACTIONS (5)
  - Agitation [Not Recovered/Not Resolved]
  - Anxiety [Not Recovered/Not Resolved]
  - Asthmatic crisis [Not Recovered/Not Resolved]
  - Tremor [Not Recovered/Not Resolved]
  - Drug ineffective [Not Recovered/Not Resolved]

NARRATIVE: CASE EVENT DATE: 201412
